FAERS Safety Report 19349323 (Version 1)
Quarter: 2021Q2

REPORT INFORMATION
  Report Type: Spontaneous
  Country: US (occurrence: US)
  Receive Date: 20210528
  Receipt Date: 20210528
  Transmission Date: 20210717
  Serious: Yes (Hospitalization)
  Sender: FDA-Public Use
  Company Number: None

PATIENT
  Sex: Male

DRUGS (14)
  1. ASPIRIN. [Concomitant]
     Active Substance: ASPIRIN
  2. METOLAZONE. [Concomitant]
     Active Substance: METOLAZONE
  3. TRESIBA FLEX [Concomitant]
  4. GAPAPENTIN [Concomitant]
  5. METOPROL TAR [Concomitant]
  6. PANTOPRAZOLE [Concomitant]
     Active Substance: PANTOPRAZOLE
  7. SILDENAFIL 20MG TAB [Suspect]
     Active Substance: SILDENAFIL
     Indication: PULMONARY ARTERIAL HYPERTENSION
     Route: 048
     Dates: start: 20210226
  8. ATORVASTATIN [Concomitant]
     Active Substance: ATORVASTATIN
  9. CLOTRIM/BETA DIPROP [Concomitant]
  10. TORSEMIDE. [Concomitant]
     Active Substance: TORSEMIDE
  11. FENOFIBRATE. [Concomitant]
     Active Substance: FENOFIBRATE
  12. FINASTERIDE. [Concomitant]
     Active Substance: FINASTERIDE
  13. POT CHLORIDE ER [Concomitant]
  14. TAMUSLOSIN [Concomitant]

REACTIONS (2)
  - Myocardial infarction [None]
  - Cardiac arrest [None]
